FAERS Safety Report 16019424 (Version 1)
Quarter: 2019Q1

REPORT INFORMATION
  Report Type: Spontaneous
  Country: GB (occurrence: GB)
  Receive Date: 20190228
  Receipt Date: 20190228
  Transmission Date: 20190418
  Serious: Yes (Hospitalization)
  Sender: FDA-Public Use
  Company Number: GB-TEVA-2019-GB-1016967

PATIENT
  Age: 33 Year

DRUGS (15)
  1. METFORMIN [Concomitant]
     Active Substance: METFORMIN HYDROCHLORIDE
     Dosage: 1000 MILLIGRAM DAILY;
  2. PRIADEL [Concomitant]
     Active Substance: LITHIUM
     Dosage: 800 MILLIGRAM DAILY;
  3. FERROUS FUMARATE [Concomitant]
     Active Substance: FERROUS FUMARATE
     Dosage: 630 MILLIGRAM DAILY;
  4. PROMETHAZINE HYDROCHLORIDE. [Concomitant]
     Active Substance: PROMETHAZINE HYDROCHLORIDE
     Dosage: 50 MILLIGRAM DAILY;
  5. THIAMINE. [Concomitant]
     Active Substance: THIAMINE
     Dosage: 300 MILLIGRAM DAILY;
  6. HYOSCINE BUTYLBROMIDE [Concomitant]
     Active Substance: BUTYLSCOPOLAMINE
     Dosage: 60 MILLIGRAM DAILY;
  7. MIRTAZAPINE. [Concomitant]
     Active Substance: MIRTAZAPINE
     Dosage: 15 MILLIGRAM DAILY; AT NIGHT
  8. LACTULOSE. [Concomitant]
     Active Substance: LACTULOSE
     Dosage: 3.1-3.7G/5ML THREE 5ML SPOONFULS TO BE TAKEN TWICE A DAY
  9. VENLAFAXINE [Suspect]
     Active Substance: VENLAFAXINE HYDROCHLORIDE
     Dosage: 150 MILLIGRAM DAILY;
  10. OMEPRAZOLE. [Concomitant]
     Active Substance: OMEPRAZOLE
     Dosage: 40 MILLIGRAM DAILY;
  11. LORAZEPAM. [Concomitant]
     Active Substance: LORAZEPAM
  12. ZOLPIDEM [Concomitant]
     Active Substance: ZOLPIDEM\ZOLPIDEM TARTRATE
     Dosage: 10 MILLIGRAM DAILY; AT NIGHT
  13. EPIPEN [Concomitant]
     Active Substance: EPINEPHRINE
     Dosage: 300MICROGRAMS/0.3ML
  14. QUETIAPINE. [Suspect]
     Active Substance: QUETIAPINE
     Dosage: 650 MILLIGRAM DAILY; 300MG TABLET 1 EACH NIGHT, 50MG TABLET: 1 IN THE MORNING, 3 AT LUNCH TIME, 3 AT
  15. PROCYCLIDINE [Concomitant]
     Active Substance: PROCYCLIDINE
     Dosage: 10 MILLIGRAM DAILY;

REACTIONS (1)
  - Pulmonary embolism [Unknown]
